FAERS Safety Report 20587000 (Version 1)
Quarter: 2022Q1

REPORT INFORMATION
  Report Type: Spontaneous
  Country: ES (occurrence: ES)
  Receive Date: 20220314
  Receipt Date: 20220314
  Transmission Date: 20220423
  Serious: Yes (Disabling, Congenital Anomaly, Other)
  Sender: FDA-Public Use
  Company Number: ES-ABBVIE-22K-144-4310230-00

PATIENT

DRUGS (1)
  1. VALPROATE SODIUM [Suspect]
     Active Substance: VALPROATE SODIUM
     Indication: Product used for unknown indication
     Route: 064

REACTIONS (24)
  - Foetal anticonvulsant syndrome [Unknown]
  - Psychomotor retardation [Unknown]
  - Joint hyperextension [Unknown]
  - Dysmorphism [Unknown]
  - Hypertonia neonatal [Unknown]
  - Dyskinesia [Unknown]
  - Epilepsy [Unknown]
  - Magnetic resonance imaging head abnormal [Unknown]
  - Mental impairment [Unknown]
  - Aphasia [Unknown]
  - Behaviour disorder [Unknown]
  - Loss of consciousness [Unknown]
  - Epileptic encephalopathy [Unknown]
  - Hypothyroidism [Unknown]
  - Dysgraphia [Unknown]
  - Autism spectrum disorder [Unknown]
  - Developmental delay [Unknown]
  - Seizure [Unknown]
  - Hypotonia [Unknown]
  - Language disorder [Unknown]
  - Loss of personal independence in daily activities [Unknown]
  - Presyncope [Unknown]
  - Loss of consciousness [Unknown]
  - Dizziness [Unknown]
